FAERS Safety Report 4771450-9 (Version None)
Quarter: 2005Q3

REPORT INFORMATION
  Report Type: 
  Country: None (occurrence: None)
  Receive Date: 20050915
  Receipt Date: 20050829
  Transmission Date: 20060218
  Serious: Yes (Hospitalization, Other)
  Sender: FDA-Public Use
  Company Number: USA0508106693

PATIENT
  Age: 32 Year
  Sex: Female

DRUGS (3)
  1. HUMATROPE [Suspect]
     Dosage: 2 MG/1 DAY
     Dates: start: 20020101
  2. FUROSEMIDE [Concomitant]
  3. ZAROXOLYN (METOLAZONE0 [Concomitant]

REACTIONS (16)
  - BLOOD GROWTH HORMONE ABNORMAL [None]
  - BLOOD GROWTH HORMONE INCREASED [None]
  - CARDIAC FAILURE CONGESTIVE [None]
  - DRUG ADMINISTRATION ERROR [None]
  - DRUG DISPENSING ERROR [None]
  - DRUG PRESCRIBING ERROR [None]
  - DYSPNOEA [None]
  - FLUID RETENTION [None]
  - GASTRIC BYPASS [None]
  - JOINT SWELLING [None]
  - MEDICAL DEVICE COMPLICATION [None]
  - MOBILITY DECREASED [None]
  - PHARMACEUTICAL PRODUCT COMPLAINT [None]
  - SHOULDER OPERATION [None]
  - SHOULDER PAIN [None]
  - WEIGHT INCREASED [None]
